FAERS Safety Report 20456539 (Version 1)
Quarter: 2022Q1

REPORT INFORMATION
  Report Type: Other
  Country: CZ (occurrence: CZ)
  Receive Date: 20220210
  Receipt Date: 20220210
  Transmission Date: 20220423
  Serious: Yes (Other)
  Sender: FDA-Public Use
  Company Number: CZ-SA-2022SA015935

PATIENT
  Age: 53 Year
  Sex: Female

DRUGS (7)
  1. CAPECITABINE [Suspect]
     Active Substance: CAPECITABINE
     Indication: Colorectal cancer metastatic
     Dosage: UNK
     Route: 048
     Dates: start: 202106
  2. ASPIRIN\GLYCINE [Concomitant]
     Active Substance: ASPIRIN\GLYCINE
  3. OMEPRAZOLE [Concomitant]
     Active Substance: OMEPRAZOLE
  4. TRITACE COMBI [Concomitant]
     Indication: Hypertension
  5. TRITACE COMBI [Concomitant]
     Indication: Accelerated hypertension
  6. INDAP [Concomitant]
     Indication: Accelerated hypertension
  7. INDAP [Concomitant]
     Indication: Hypertension

REACTIONS (5)
  - Palmar-plantar erythrodysaesthesia syndrome [Recovered/Resolved]
  - Diarrhoea [Unknown]
  - Metastases to liver [Unknown]
  - Metastases to lung [Unknown]
  - Disease progression [Unknown]

NARRATIVE: CASE EVENT DATE: 20211001
